FAERS Safety Report 15276713 (Version 3)
Quarter: 2018Q3

REPORT INFORMATION
  Report Type: Spontaneous
  Country: US (occurrence: US)
  Receive Date: 20180814
  Receipt Date: 20180910
  Transmission Date: 20181010
  Serious: Yes (Disabling, Other)
  Sender: FDA-Public Use
  Company Number: US-009507513-1808USA003873

PATIENT
  Age: 68 Year
  Sex: Male
  Weight: 78.91 kg

DRUGS (3)
  1. KEYTRUDA [Suspect]
     Active Substance: PEMBROLIZUMAB
     Indication: MESOTHELIOMA MALIGNANT
     Dosage: 1 DOSE, INFUSION
     Dates: start: 20180427, end: 20180427
  2. SYNTHROID [Concomitant]
     Active Substance: LEVOTHYROXINE SODIUM
     Dosage: UNK
  3. AMLODIPINE [Concomitant]
     Active Substance: AMLODIPINE BESYLATE
     Dosage: UNK

REACTIONS (23)
  - Lacrimal gland enlargement [Recovered/Resolved]
  - Oedema peripheral [Recovered/Resolved]
  - Pyrexia [Recovered/Resolved]
  - Product use in unapproved indication [Unknown]
  - Dry mouth [Not Recovered/Not Resolved]
  - Arthralgia [Recovered/Resolved]
  - Sinus congestion [Not Recovered/Not Resolved]
  - Pneumonitis [Recovered/Resolved]
  - Eating disorder [Unknown]
  - Pain [Unknown]
  - Weight decreased [Unknown]
  - Dyspnoea [Unknown]
  - Fatigue [Recovered/Resolved]
  - Nasal dryness [Not Recovered/Not Resolved]
  - Rash vesicular [Recovered/Resolved]
  - Myalgia [Unknown]
  - Hypersensitivity [Unknown]
  - Chills [Recovered/Resolved]
  - Aptyalism [Not Recovered/Not Resolved]
  - Colitis [Recovered/Resolved]
  - Eyelid disorder [Recovered/Resolved]
  - Dry eye [Not Recovered/Not Resolved]
  - Arthralgia [Recovered/Resolved]

NARRATIVE: CASE EVENT DATE: 2018
